FAERS Safety Report 7384308-6 (Version None)
Quarter: 2011Q1

REPORT INFORMATION
  Report Type: 
  Country: None (occurrence: None)
  Receive Date: 20110330
  Receipt Date: 20110316
  Transmission Date: 20110831
  Serious: Yes (Hospitalization, Other)
  Sender: FDA-Public Use
  Company Number: JP-CELGENEUS-087-21880-10100390

PATIENT
  Sex: Female

DRUGS (9)
  1. LENADEX [Suspect]
     Indication: MULTIPLE MYELOMA
     Dosage: 40 MILLIGRAM
     Route: 048
     Dates: start: 20100917, end: 20101001
  2. BAKTAR [Concomitant]
     Dosage: .5 GRAM
     Route: 048
     Dates: start: 20100917, end: 20101007
  3. DIFLUCAN [Concomitant]
     Indication: PROPHYLAXIS
     Dosage: 100 MILLIGRAM
     Route: 048
     Dates: start: 20100917, end: 20101007
  4. LASIX [Concomitant]
     Dosage: 10 MILLIGRAM
     Route: 048
     Dates: start: 20100917, end: 20101007
  5. ASPIRIN [Concomitant]
     Indication: PROPHYLAXIS
     Dosage: 100 MILLIGRAM
     Route: 048
     Dates: start: 20100917, end: 20101007
  6. PREDONINE [Concomitant]
     Dosage: 5 MILLIGRAM
     Route: 048
     Dates: start: 20100917, end: 20101007
  7. REVLIMID [Suspect]
     Indication: MULTIPLE MYELOMA
     Dosage: 15 MILLIGRAM
     Route: 048
     Dates: start: 20100917, end: 20101007
  8. TAKEPRON [Concomitant]
     Indication: PROPHYLAXIS
     Dosage: 15 MILLIGRAM
     Route: 048
     Dates: start: 20100917, end: 20101007
  9. BORTEZOMIB [Concomitant]
     Route: 065

REACTIONS (5)
  - POSTERIOR REVERSIBLE ENCEPHALOPATHY SYNDROME [None]
  - RENAL FAILURE ACUTE [None]
  - FEMORAL NECK FRACTURE [None]
  - TUMOUR LYSIS SYNDROME [None]
  - THROMBOCYTOPENIA [None]
